FAERS Safety Report 4685434-2 (Version None)
Quarter: 2005Q2

REPORT INFORMATION
  Report Type: 
  Country: None (occurrence: None)
  Receive Date: 20050608
  Receipt Date: 20050603
  Transmission Date: 20051028
  Serious: Yes (Hospitalization)
  Sender: FDA-Public Use
  Company Number: US-MERCK-0506USA00756

PATIENT
  Sex: Female

DRUGS (4)
  1. VIOXX [Suspect]
     Indication: MONARTHRITIS
     Route: 048
     Dates: start: 20020101, end: 20041001
  2. ZOLOFT [Concomitant]
     Indication: DEPRESSION
     Route: 065
     Dates: start: 19970101, end: 20030101
  3. LEVOXYL [Concomitant]
     Indication: HYPOTHYROIDISM
     Route: 065
     Dates: start: 19970101
  4. ANALGESIC OR ANESTHETIC (UNSPECIFIED) [Concomitant]
     Route: 065
     Dates: start: 20040101

REACTIONS (4)
  - CHEST PAIN [None]
  - FATIGUE [None]
  - HYPERSOMNIA [None]
  - HYPERTENSION [None]
